FAERS Safety Report 9871510 (Version 2)
Quarter: 2014Q1

REPORT INFORMATION
  Report Type: Spontaneous
  Country: CN (occurrence: CN)
  Receive Date: 20140205
  Receipt Date: 20140205
  Transmission Date: 20141002
  Serious: Yes (Hospitalization, Other)
  Sender: FDA-Public Use
  Company Number: CN-ABBVIE-13P-035-1031869-00

PATIENT
  Age: 17 Year
  Sex: Male

DRUGS (3)
  1. DEPAKINE CHRONO [Suspect]
     Indication: EPILEPSY
     Dosage: 2.5 DOSAGE FORM DAILY
     Route: 048
     Dates: start: 2009
  2. DEPAKINE CHRONO [Suspect]
     Dosage: 3.5 DOSAGE FORM DAILY
     Route: 048
     Dates: start: 201212, end: 201212
  3. DEPAKINE CHRONO [Suspect]
     Dosage: 2.5 DOSAGE FORM DAILY
     Route: 048
     Dates: start: 201212

REACTIONS (8)
  - Suspected counterfeit product [Recovered/Resolved]
  - Epilepsy [Recovered/Resolved]
  - Syncope [Recovered/Resolved]
  - Foaming at mouth [Recovered/Resolved]
  - Trismus [Recovered/Resolved]
  - Tongue biting [Recovered/Resolved]
  - Fall [Recovered/Resolved]
  - Convulsion [Recovered/Resolved]
